FAERS Safety Report 6829030-7 (Version None)
Quarter: 2010Q3

REPORT INFORMATION
  Report Type: 
  Country: None (occurrence: None)
  Receive Date: 20100706
  Receipt Date: 20100528
  Transmission Date: 20110219
  Serious: Yes (Other)
  Sender: FDA-Public Use
  Company Number: 1000014120

PATIENT
  Age: 36 Year
  Sex: Female

DRUGS (1)
  1. ESCITALOPRAM [Suspect]
     Dosage: (10MG)

REACTIONS (5)
  - ANXIETY [None]
  - CHEST DISCOMFORT [None]
  - DRUG INEFFECTIVE [None]
  - MUSCLE TWITCHING [None]
  - PANIC ATTACK [None]
